FAERS Safety Report 7024728-2 (Version None)
Quarter: 2010Q3

REPORT INFORMATION
  Report Type: 
  Country: None (occurrence: None)
  Receive Date: 20100929
  Receipt Date: 20100922
  Transmission Date: 20110219
  Serious: Yes (Hospitalization)
  Sender: FDA-Public Use
  Company Number: A-CH2010-40031

PATIENT
  Age: 36 Year
  Sex: Female
  Weight: 63 kg

DRUGS (12)
  1. TRACLEER [Suspect]
     Indication: PULMONARY ARTERIAL HYPERTENSION
     Dosage: 125 MG, BID, ORAL; 62.5 MG, BID, ORAL
     Route: 048
     Dates: start: 20070706, end: 20071113
  2. TRACLEER [Suspect]
     Indication: PULMONARY ARTERIAL HYPERTENSION
     Dosage: 125 MG, BID, ORAL; 62.5 MG, BID, ORAL
     Route: 048
     Dates: start: 20071114
  3. BERAPROST SODIUM (BERAPROST SODIUM) [Concomitant]
  4. PREDNISOLONE [Concomitant]
  5. SARPOGRELATE HYDROCHLORIDE (SARPROGRELATE HYDROCHLORIDE) [Concomitant]
  6. ALENDRONATE SODIUM [Concomitant]
  7. ALFACALCIDOL (ALFACALCIDOL) [Concomitant]
  8. LAFUTIDINE (LAFUTIDINE) [Concomitant]
  9. ECABET MONOSODIUM (ECABET MONOSODIUM) [Concomitant]
  10. SENNA LEFA (SENNA ALEXANDRINA LEAF) [Concomitant]
  11. SENNA FRUIT (SENNA ALEXANDRINA FRUIT) [Concomitant]
  12. SENNOSIDE (SENNOSIDE A + B CALCIUM) [Concomitant]

REACTIONS (2)
  - DISEASE PROGRESSION [None]
  - SYSTEMIC LUPUS ERYTHEMATOSUS [None]
